FAERS Safety Report 17950726 (Version 4)
Quarter: 2021Q2

REPORT INFORMATION
  Report Type: Spontaneous
  Country: CA (occurrence: CA)
  Receive Date: 20200626
  Receipt Date: 20210426
  Transmission Date: 20210717
  Serious: Yes (Other)
  Sender: FDA-Public Use
  Company Number: CA-OTSUKA-2019_036515

PATIENT
  Sex: Female
  Weight: 77 kg

DRUGS (17)
  1. ABILIFY [Suspect]
     Active Substance: ARIPIPRAZOLE
     Indication: SCHIZOPHRENIA
     Dosage: 10 MG, QD
     Route: 048
     Dates: start: 20171220, end: 20190924
  2. TOPIRAMATE. [Suspect]
     Active Substance: TOPIRAMATE
     Dosage: 5 MG, UNK
     Route: 048
  3. CLONAZEPAM. [Suspect]
     Active Substance: CLONAZEPAM
     Indication: INSOMNIA
     Dosage: 0.5 MG, (GESTATIONAL AGE AT TIME OF EXPOSURE: 0?6/7 WEEKS)
     Route: 048
     Dates: start: 20171220, end: 20190924
  4. NOZINAN [Suspect]
     Active Substance: LEVOMEPROMAZINE
     Indication: AFFECTIVE DISORDER
     Dosage: 10 MG, (GESTATIONAL AGE AT TIME OF EXPOSURE: 0?8 WEEKS)
     Route: 048
     Dates: start: 20171220, end: 20190924
  5. VALPROATE SEMISODIUM [Suspect]
     Active Substance: DIVALPROEX SODIUM
     Indication: AFFECTIVE DISORDER
     Dosage: 250 MG, UNK
     Route: 048
     Dates: start: 20190730, end: 20190904
  6. ESCITALOPRAM [Suspect]
     Active Substance: ESCITALOPRAM OXALATE
     Indication: DEPRESSION
     Dosage: 10 MG, UNK
     Route: 048
     Dates: start: 20170720, end: 20190924
  7. METHOTRIMEPRAZINE [Suspect]
     Active Substance: LEVOMEPROMAZINE
     Dosage: 5 MG, UNK
     Route: 048
  8. HALDOL [Suspect]
     Active Substance: HALOPERIDOL
     Indication: SCHIZOPHRENIA
     Dosage: 5 MG,  (DISCONTINUED BY SELF IN HOSPITAL) (GESTATIONAL AGE AT TIME OF EXPOSURE: 10 WEEKS? ?)
     Route: 048
     Dates: start: 20191025, end: 20191216
  9. HALDOL [Suspect]
     Active Substance: HALOPERIDOL
     Dosage: UNK
     Route: 048
  10. DIAZEPAM. [Suspect]
     Active Substance: DIAZEPAM
     Indication: AFFECTIVE DISORDER
     Dosage: 250 MG, UNK
     Route: 048
  11. METHOTRIMEPRAZINE [Suspect]
     Active Substance: LEVOMEPROMAZINE
     Indication: SCHIZOAFFECTIVE DISORDER
     Dosage: 10 MG, UNK
     Route: 048
     Dates: start: 20171220, end: 20190924
  12. EPIVAL [Suspect]
     Active Substance: DIVALPROEX SODIUM
     Indication: AFFECTIVE DISORDER
     Dosage: 250 MG, (GESTATIONAL AGE AT TIME OF EXPOSURE: 0?4 WEEKS)
     Route: 048
     Dates: start: 20190730, end: 20190904
  13. NOZINAN [Suspect]
     Active Substance: LEVOMEPROMAZINE
     Indication: SCHIZOPHRENIA
     Dosage: 5 MG, (GESTATIONAL AGE AT TIME OF EXPOSURE: 6?10 WEEKS)
     Route: 048
     Dates: start: 20190724, end: 20191024
  14. QUETIAPINE. [Concomitant]
     Active Substance: QUETIAPINE
     Indication: SCHIZOPHRENIA
     Dosage: 50 MG, UNK
     Route: 048
     Dates: start: 20191025
  15. QUETIAPINE. [Concomitant]
     Active Substance: QUETIAPINE
     Dosage: 5 MG, UNK
     Route: 048
  16. CIPRALEX [Suspect]
     Active Substance: ESCITALOPRAM OXALATE
     Indication: DEPRESSION
     Dosage: 10 MG,  (GESTATIONAL AGE AT TIME OF EXPOSURE: 0?6/7 WEEKS)
     Route: 048
     Dates: start: 20171220, end: 20190924
  17. TOPIRAMATE. [Suspect]
     Active Substance: TOPIRAMATE
     Indication: WEIGHT CONTROL
     Dosage: 100 MG, (GESTATIONAL AGE AT TIME OF EXPOSURE: 0?6/7 WEEKS)
     Route: 048
     Dates: start: 20171220, end: 20190924

REACTIONS (2)
  - Maternal exposure during pregnancy [Unknown]
  - Hallucination, auditory [Unknown]
